FAERS Safety Report 4775303-1 (Version None)
Quarter: 2005Q3

REPORT INFORMATION
  Report Type: 
  Country: None (occurrence: None)
  Receive Date: 20050920
  Receipt Date: 20050920
  Transmission Date: 20060218
  Serious: Yes (Hospitalization)
  Sender: FDA-Public Use
  Company Number: None

PATIENT
  Age: 40 Year
  Sex: Male

DRUGS (1)
  1. ZOSYN [Suspect]
     Indication: ARTHRITIS BACTERIAL
     Dosage: 4.5 GMS IV EVERY 8 HOURS
     Route: 042
     Dates: start: 20050425, end: 20050510

REACTIONS (2)
  - CHILLS [None]
  - FEBRILE NEUTROPENIA [None]
